FAERS Safety Report 5458933-3 (Version None)
Quarter: 2007Q3

REPORT INFORMATION
  Report Type: 
  Country: None (occurrence: None)
  Receive Date: 20070919
  Receipt Date: 20070907
  Transmission Date: 20080115
  Serious: Yes (Hospitalization, Other)
  Sender: FDA-Public Use
  Company Number: US-AMGEN-STX235273

PATIENT
  Sex: Male
  Weight: 95.8 kg

DRUGS (15)
  1. ENBREL [Suspect]
     Indication: PSORIATIC ARTHROPATHY
     Route: 058
     Dates: start: 20031101
  2. METHOTREXATE [Concomitant]
  3. TRAZODONE HCL [Concomitant]
  4. ASPIRIN [Concomitant]
  5. RISPERDAL [Concomitant]
  6. ATENOLOL [Concomitant]
  7. PROTONIX [Concomitant]
  8. VALIUM [Concomitant]
  9. FLOMAX [Concomitant]
  10. SEROQUEL [Concomitant]
  11. DIFLORASONE DIACETATE [Concomitant]
  12. NAPROXEN [Concomitant]
  13. FOLIC ACID [Concomitant]
  14. BENZTROPINE MESYLATE [Concomitant]
  15. GEODON [Concomitant]

REACTIONS (5)
  - CEREBROVASCULAR ACCIDENT [None]
  - CONVULSION [None]
  - MUSCLE SPASMS [None]
  - SINUSITIS [None]
  - TRANSIENT ISCHAEMIC ATTACK [None]
